FAERS Safety Report 7794033 (Version 3)
Quarter: 2012Q4

REPORT INFORMATION
  Report Type: 
  Country: TW (occurrence: TW)
  Receive Date: 20110201
  Receipt Date: 20121031
  Transmission Date: 20130627
  Serious: Yes (Hospitalization)
  Sender: FDA-Public Use
  Company Number: TW-ASTRAZENECA-2011SE05041

PATIENT
  Age: 74 Year
  Sex: Male
  Weight: 110 kg

DRUGS (6)
  1. NEXIUM [Suspect]
     Route: 048
     Dates: start: 20080108, end: 20100816
  2. CELECOXIB\IBUPROFEN\NAPROXEN\PLACEBO [Suspect]
     Indication: OSTEOARTHRITIS
     Route: 048
     Dates: start: 20080108, end: 20100816
  3. CELECOXIB\IBUPROFEN\NAPROXEN\PLACEBO [Suspect]
     Indication: RHEUMATOID ARTHRITIS
     Route: 048
     Dates: start: 20080108, end: 20100816
  4. APROVEL [Concomitant]
     Route: 065
     Dates: start: 20060207
  5. COLCHICINE [Concomitant]
     Route: 065
     Dates: start: 20060207
  6. AMARYL [Concomitant]
     Route: 065
     Dates: start: 20081209

REACTIONS (1)
  - Coronary artery disease [Recovering/Resolving]
